FAERS Safety Report 5735801-0 (Version None)
Quarter: 2008Q2

REPORT INFORMATION
  Report Type: 
  Country: None (occurrence: None)
  Receive Date: 20080508
  Receipt Date: 20080508
  Transmission Date: 20081010
  Serious: No
  Sender: FDA-Public Use
  Company Number: None

PATIENT
  Age: 25 Year
  Sex: Female
  Weight: 58.9676 kg

DRUGS (2)
  1. PRO-HEALTH TOOTHPASTE CREST [Suspect]
     Indication: DENTAL DISORDER PROPHYLAXIS
     Dosage: RECOMMENDED TWICE DENTAL
     Route: 004
     Dates: start: 20080317, end: 20080331
  2. PRO-HEALTH MOUTH WASH CREST [Suspect]
     Indication: DENTAL DISORDER PROPHYLAXIS
     Dosage: RECOMMENDED TWICE DENTAL
     Route: 004
     Dates: start: 20080317, end: 20080331

REACTIONS (2)
  - AGEUSIA [None]
  - ORAL DISORDER [None]
